FAERS Safety Report 9479591 (Version 1)
Quarter: 2013Q3

REPORT INFORMATION
  Report Type: Report from Study
  Country: AR (occurrence: AR)
  Receive Date: 20130827
  Receipt Date: 20130827
  Transmission Date: 20140515
  Serious: Yes (Other)
  Sender: FDA-Public Use
  Company Number: PHHY2013AR092446

PATIENT
  Sex: Male

DRUGS (3)
  1. TEGRETOL [Suspect]
     Indication: TRIGEMINAL NERVE DISORDER
     Dosage: 200 MG, UNK
  2. EXFORGE [Suspect]
     Indication: HYPERTENSION
     Dosage: 1 DF (320MG VALS/ 5MG AMLO), DAILY
     Route: 048
  3. EXFORGE [Suspect]
     Dosage: 0.5 DF (320MG VALS/ 5MG AMLO), DAILY
     Route: 048

REACTIONS (4)
  - Renal artery occlusion [Recovered/Resolved]
  - Neuralgia [Unknown]
  - Muscle twitching [Unknown]
  - Pain [Unknown]
